FAERS Safety Report 10608907 (Version 1)
Quarter: 2014Q4

REPORT INFORMATION
  Report Type: Spontaneous
  Country: IL (occurrence: IL)
  Receive Date: 20141125
  Receipt Date: 20141125
  Transmission Date: 20150529
  Serious: Yes (Hospitalization, Other)
  Sender: FDA-Public Use
  Company Number: IL-009507513-1411ISR011040

PATIENT
  Age: 62 Year
  Sex: Male

DRUGS (5)
  1. CARTIA (DILTIAZEM HYDROCHLORIDE) [Concomitant]
  2. NORMITEN [Concomitant]
     Active Substance: ATENOLOL
  3. SANDOSTATIN [Concomitant]
     Active Substance: OCTREOTIDE ACETATE
     Indication: CARCINOID SYNDROME
  4. LOSARDEX PLUS [Concomitant]
  5. JANUET [Suspect]
     Active Substance: METFORMIN HYDROCHLORIDE\SITAGLIPTIN PHOSPHATE
     Route: 048

REACTIONS (3)
  - Pulmonary embolism [Unknown]
  - Dyspnoea [Unknown]
  - Chest discomfort [Unknown]

NARRATIVE: CASE EVENT DATE: 201411
